FAERS Safety Report 6962660-0 (Version None)
Quarter: 2010Q3

REPORT INFORMATION
  Report Type: 
  Country: None (occurrence: None)
  Receive Date: 20100823
  Receipt Date: 20100422
  Transmission Date: 20110219
  Serious: Yes (Hospitalization, Other)
  Sender: FDA-Public Use
  Company Number: 010627

PATIENT
  Sex: Male
  Weight: 113.4 kg

DRUGS (5)
  1. CIMZIA [Suspect]
     Indication: CROHN'S DISEASE
     Dosage: (SUBCUTANEOUS)
     Route: 058
     Dates: start: 20091027
  2. MERCAPTOPURINE [Concomitant]
  3. IRON [Concomitant]
  4. DAILY MULTIVITAMIN [Concomitant]
  5. PRILOSEC [Concomitant]

REACTIONS (4)
  - INTESTINAL OBSTRUCTION [None]
  - PAIN [None]
  - RECTAL HAEMORRHAGE [None]
  - WEIGHT INCREASED [None]
